FAERS Safety Report 16566958 (Version 1)
Quarter: 2019Q3

REPORT INFORMATION
  Report Type: Spontaneous
  Country: NL (occurrence: ES)
  Receive Date: 20190712
  Receipt Date: 20190712
  Transmission Date: 20191004
  Serious: Yes (Hospitalization, Other)
  Sender: FDA-Public Use
  Company Number: ES-FRESENIUS KABI-FK201907493

PATIENT
  Age: 54 Year
  Sex: Male

DRUGS (8)
  1. BEVACIZUMAB. [Suspect]
     Active Substance: BEVACIZUMAB
     Indication: LUNG ADENOCARCINOMA
     Route: 065
  2. NIVOLUMAB [Suspect]
     Active Substance: NIVOLUMAB
     Indication: LUNG ADENOCARCINOMA
     Route: 065
  3. CARBOPLATIN. [Suspect]
     Active Substance: CARBOPLATIN
     Indication: LUNG ADENOCARCINOMA
     Route: 065
  4. DOCETAXEL. [Suspect]
     Active Substance: DOCETAXEL
     Indication: LUNG ADENOCARCINOMA
     Route: 065
  5. PACLITAXEL (MANUFACTURER UNKNOWN) [Suspect]
     Active Substance: PACLITAXEL
     Indication: LUNG ADENOCARCINOMA
     Route: 065
  6. PARACETAMOL/TRAMADOL [Concomitant]
     Indication: PRODUCT USED FOR UNKNOWN INDICATION
     Dosage: 325/37.5MG (IF HE EXPRESSES PAIN)
     Route: 065
  7. NINTEDANIB [Suspect]
     Active Substance: NINTEDANIB
     Indication: LUNG ADENOCARCINOMA
     Route: 065
  8. HYDROCHLOROTHIAZIDE/ENALAPRIL [Concomitant]
     Indication: PRODUCT USED FOR UNKNOWN INDICATION
     Dosage: 20/12.5MG
     Route: 065

REACTIONS (12)
  - Alopecia [Unknown]
  - Asthenia [Unknown]
  - Neurotoxicity [Unknown]
  - Abdominal pain upper [Unknown]
  - Nephropathy toxic [Unknown]
  - Abdominal pain lower [Unknown]
  - Diarrhoea [Unknown]
  - Neutropenia [Unknown]
  - Vomiting [Unknown]
  - Metastases to central nervous system [Unknown]
  - General physical health deterioration [Unknown]
  - Malaise [Unknown]
